FAERS Safety Report 6835576-8 (Version None)
Quarter: 2010Q2

REPORT INFORMATION
  Report Type: 
  Country: None (occurrence: None)
  Receive Date: 20100520
  Receipt Date: 20091203
  Transmission Date: 20101027
  Serious: Yes (Other)
  Sender: FDA-Public Use
  Company Number: 2006052026

PATIENT
  Age: 43 Year
  Sex: Female

DRUGS (9)
  1. PROVERA [Suspect]
     Indication: HORMONE REPLACEMENT THERAPY
     Dosage: 10 MG, ORAL
     Route: 048
     Dates: start: 19920101, end: 19960101
  2. PROVERA [Suspect]
     Indication: MENOPAUSE
     Dosage: 10 MG, ORAL
     Route: 048
     Dates: start: 19920101, end: 19960101
  3. MEDROXYPROGESTERONE ACETATE [Suspect]
     Indication: HORMONE REPLACEMENT THERAPY
  4. PREMARIN [Suspect]
     Indication: HORMONE REPLACEMENT THERAPY
     Dosage: 0.625 MG ; 0.9 MG
     Dates: start: 19940101, end: 19960101
  5. PREMARIN [Suspect]
     Indication: MENOPAUSE
     Dosage: 0.625 MG ; 0.9 MG
     Dates: start: 19940101, end: 19960101
  6. PREMARIN [Suspect]
     Indication: HORMONE REPLACEMENT THERAPY
     Dosage: 0.625 MG ; 0.9 MG
     Dates: start: 19960101
  7. PREMARIN [Suspect]
     Indication: MENOPAUSE
     Dosage: 0.625 MG ; 0.9 MG
     Dates: start: 19960101
  8. PREMPHASE (MEDROXYPROGESTERONE ACETATE,ESTROGENS CONJUGATED) UNKNOWN [Suspect]
     Indication: HORMONE REPLACEMENT THERAPY
     Dosage: 0.625/5MG
     Dates: start: 19940601, end: 20040101
  9. ESTRATEST [Suspect]
     Indication: HORMONE REPLACEMENT THERAPY

REACTIONS (1)
  - BREAST CANCER METASTATIC [None]
